FAERS Safety Report 15641993 (Version 2)
Quarter: 2018Q4

REPORT INFORMATION
  Report Type: Report from Study
  Country: FR (occurrence: FR)
  Receive Date: 20181121
  Receipt Date: 20181221
  Transmission Date: 20190205
  Serious: Yes (Life-Threatening, Hospitalization)
  Sender: FDA-Public Use
  Company Number: FR-TEVA-2018-FR-976670

PATIENT
  Age: 52 Year
  Sex: Female
  Weight: 53 kg

DRUGS (7)
  1. TAMOXIFEN [Suspect]
     Active Substance: TAMOXIFEN
     Route: 048
     Dates: start: 20180124, end: 20180929
  2. LEUPROLIDE [Suspect]
     Active Substance: LEUPROLIDE
     Indication: INVASIVE DUCTAL BREAST CARCINOMA
     Dosage: 11.25 MG
     Route: 030
     Dates: start: 20180125
  3. EFFICORT LIPOPHILE [Concomitant]
     Indication: PSORIASIS
     Dates: start: 20180125
  4. TAMOXIFEN [Suspect]
     Active Substance: TAMOXIFEN
     Indication: INVASIVE DUCTAL BREAST CARCINOMA
     Route: 048
     Dates: start: 20181002
  5. EFFERALGAN [Concomitant]
     Active Substance: ACETAMINOPHEN
     Indication: ARTHRALGIA
     Dates: start: 20180216
  6. MIRTAZAPINE. [Concomitant]
     Active Substance: MIRTAZAPINE
     Indication: DEPRESSION
     Dates: start: 20180131
  7. RAMIPRIL. [Concomitant]
     Active Substance: RAMIPRIL
     Indication: HYPERTENSION
     Dates: start: 1998

REACTIONS (3)
  - Suicide attempt [Recovered/Resolved with Sequelae]
  - Unevaluable event [Unknown]
  - Depression [Unknown]

NARRATIVE: CASE EVENT DATE: 2018
